FAERS Safety Report 4357752-9 (Version None)
Quarter: 2004Q2

REPORT INFORMATION
  Report Type: 
  Country: None (occurrence: None)
  Receive Date: 20040511
  Receipt Date: 20040426
  Transmission Date: 20050107
  Serious: Yes (Hospitalization)
  Sender: FDA-Public Use
  Company Number: 2004-BP-02805NB

PATIENT
  Sex: Female

DRUGS (4)
  1. MEXITIL [Suspect]
     Indication: VENTRICULAR EXTRASYSTOLES
     Dosage: PO
     Route: 048
     Dates: start: 20040331, end: 20040401
  2. TENORMIN (TA) [Concomitant]
  3. CRAVIT (LEVOFLOXACIN) (TRA) [Concomitant]
  4. FLUMETHOLON (FLUOROMETHALONE) (TRA) [Concomitant]

REACTIONS (2)
  - DRUG ERUPTION [None]
  - SWELLING FACE [None]
